FAERS Safety Report 12670357 (Version 1)
Quarter: 2016Q3

REPORT INFORMATION
  Report Type: Spontaneous
  Country: US (occurrence: US)
  Receive Date: 20160822
  Receipt Date: 20160822
  Transmission Date: 20161109
  Serious: No
  Sender: FDA-Public Use
  Company Number: US-GLAXOSMITHKLINE-CHPA2015US014964

PATIENT
  Age: 52 Year
  Sex: Female

DRUGS (2)
  1. EXCEDRIN MIGRAINE [Suspect]
     Active Substance: ACETAMINOPHEN\ASPIRIN\CAFFEINE
     Indication: MIGRAINE
     Dosage: 2 DF, UNK
     Route: 048
     Dates: start: 20151209, end: 20151209
  2. SUDAFED [Concomitant]
     Active Substance: PSEUDOEPHEDRINE HYDROCHLORIDE
     Indication: PRODUCT USED FOR UNKNOWN INDICATION
     Dosage: UNK
     Route: 048
     Dates: start: 20151209

REACTIONS (2)
  - Pain [Unknown]
  - Drug ineffective [Unknown]

NARRATIVE: CASE EVENT DATE: 20151209
